FAERS Safety Report 22032886 (Version 1)
Quarter: 2023Q1

REPORT INFORMATION
  Report Type: Spontaneous
  Country: US (occurrence: None)
  Receive Date: 20230222
  Receipt Date: 20230222
  Transmission Date: 20230417
  Serious: Yes (Other)
  Sender: FDA-Public Use
  Company Number: None

PATIENT
  Age: 29 Year
  Sex: Female
  Weight: 62 kg

DRUGS (2)
  1. DEVICE [Suspect]
     Active Substance: DEVICE
     Indication: Epidural anaesthesia
     Dosage: OTHER FREQUENCY : ONCE;?
     Dates: start: 20230215, end: 20230215
  2. BUPIVACAINE [Suspect]
     Active Substance: BUPIVACAINE

REACTIONS (3)
  - Anaesthetic complication [None]
  - Device malfunction [None]
  - Drug ineffective [None]

NARRATIVE: CASE EVENT DATE: 20230215
